FAERS Safety Report 10428639 (Version 2)
Quarter: 2014Q3

REPORT INFORMATION
  Report Type: Report from Study
  Country: US (occurrence: US)
  Receive Date: 20140903
  Receipt Date: 20140916
  Transmission Date: 20150326
  Serious: Yes (Hospitalization)
  Sender: FDA-Public Use
  Company Number: US-ACTELION-A-US2014-104442

PATIENT
  Age: 59 Year
  Sex: Female

DRUGS (1)
  1. MACITENTAN [Suspect]
     Active Substance: MACITENTAN
     Indication: PULMONARY ARTERIAL HYPERTENSION
     Dosage: 10 MG, QD
     Route: 048
     Dates: start: 20140627

REACTIONS (5)
  - Concomitant disease aggravated [Recovering/Resolving]
  - Pain [Recovering/Resolving]
  - Fluid overload [Recovering/Resolving]
  - Respiratory distress [Recovering/Resolving]
  - Sickle cell anaemia [Recovering/Resolving]

NARRATIVE: CASE EVENT DATE: 20140818
